FAERS Safety Report 15356417 (Version 3)
Quarter: 2019Q3

REPORT INFORMATION
  Report Type: Report from Study
  Country: US (occurrence: US)
  Receive Date: 20180906
  Receipt Date: 20190806
  Transmission Date: 20191004
  Serious: Yes (Hospitalization)
  Sender: FDA-Public Use
  Company Number: PHHO2018US009833

PATIENT
  Age: 4 Year
  Sex: Male

DRUGS (26)
  1. CYCLOPHOSPHAMIDE. [Suspect]
     Active Substance: CYCLOPHOSPHAMIDE
     Indication: ACUTE LYMPHOCYTIC LEUKAEMIA
     Dosage: 720 MG, ONE TIME  DID29
     Route: 042
     Dates: start: 20180727
  2. CHOLECALCIFEROL [Concomitant]
     Active Substance: CHOLECALCIFEROL
     Indication: VITAMIN SUPPLEMENTATION
     Dosage: 800 U, QD
     Route: 065
     Dates: start: 20171112
  3. CYTARABINE. [Suspect]
     Active Substance: CYTARABINE
     Indication: ACUTE LYMPHOCYTIC LEUKAEMIA
     Dosage: 54 MG, Q24HR
     Route: 042
     Dates: start: 20180803
  4. ONDANSETRON [Concomitant]
     Active Substance: ONDANSETRON
     Indication: NAUSEA
     Dosage: 2.4 MG, Q8H PM
     Route: 048
     Dates: start: 20171112
  5. HYDROXYZINE [Concomitant]
     Active Substance: HYDROXYZINE HYDROCHLORIDE
     Indication: PRURITUS
     Dosage: 7.5 MG, Q6H PM
     Route: 048
     Dates: start: 20171112
  6. CARBAMIDE PEROXIDE [Concomitant]
     Active Substance: CARBAMIDE PEROXIDE
     Indication: CERUMEN REMOVAL
     Dosage: 5 GTT, BID
     Route: 001
     Dates: start: 20180812
  7. ONDANSETRON [Concomitant]
     Active Substance: ONDANSETRON
     Indication: VOMITING
     Dosage: 2.4 MG, Q8H PRN
     Route: 048
     Dates: start: 20171112
  8. SIMETHICONE (DIMETHICONE) [Concomitant]
     Active Substance: DIMETHICONE
     Indication: FLATULENCE
     Dosage: 40 MG, TID PM
     Route: 048
     Dates: start: 20180405
  9. ASPARAGINASE [Suspect]
     Active Substance: ASPARAGINASE
     Indication: ACUTE LYMPHOCYTIC LEUKAEMIA
     Dosage: 18.500 U, MWF FOR 2 WEEKS (TOTAL OF 6 DOSES), DID43
     Route: 042
     Dates: start: 20180810
  10. ROXICODONE [Concomitant]
     Active Substance: OXYCODONE HYDROCHLORIDE
     Indication: PAIN
     Dosage: 1.5 MG, Q6H PM
     Route: 048
     Dates: start: 20171112
  11. REGLAN [Concomitant]
     Active Substance: METOCLOPRAMIDE HYDROCHLORIDE
     Indication: NAUSEA
     Dosage: 6 MG, Q6H PM
     Route: 048
     Dates: start: 20171214
  12. VINCRISTINE [Suspect]
     Active Substance: VINCRISTINE
     Indication: ACUTE LYMPHOCYTIC LEUKAEMIA
     Dosage: 1.1 MG, ONE TIME DID43
     Route: 042
     Dates: start: 20180809
  13. IMMUNOGLOBULIN IV [Concomitant]
     Active Substance: HUMAN IMMUNOGLOBULIN G
     Indication: BLOOD IMMUNOGLOBULIN G DECREASED
     Dosage: 6-8 G, PRN
     Route: 042
     Dates: start: 20180117
  14. CETIRIZINE [Concomitant]
     Active Substance: CETIRIZINE HYDROCHLORIDE
     Indication: HYPERSENSITIVITY
     Dosage: 2.5 MG, QD
     Route: 048
     Dates: start: 20180628
  15. HYDROXYZINE [Concomitant]
     Active Substance: HYDROXYZINE HYDROCHLORIDE
     Dosage: 7.5 MG, Q6H PRN
     Route: 048
     Dates: start: 20171112
  16. BENADRYL [Concomitant]
     Active Substance: DIPHENHYDRAMINE HYDROCHLORIDE
     Indication: NAUSEA
     Dosage: 15 MG, Q6H PM
     Route: 048
     Dates: start: 20171214
  17. ACETAMINOPHEN. [Concomitant]
     Active Substance: ACETAMINOPHEN
     Indication: PAIN
     Dosage: 205 MG, Q4H PM
     Route: 048
     Dates: start: 20180805
  18. INC424A [Suspect]
     Active Substance: RUXOLITINIB
     Indication: ACUTE LYMPHOCYTIC LEUKAEMIA
     Dosage: 30 MG, BID DID43
     Route: 048
     Dates: start: 20180727
  19. LIDOCAINE/PRILOCAINE [Concomitant]
     Active Substance: LIDOCAINE\PRILOCAINE
     Indication: HYPOAESTHESIA
     Dosage: 2.5 G, PRN (1 HR PRIOR TO PAINFUL PROCEDURE)
     Route: 061
     Dates: start: 20171112
  20. POLY VI SOL [Concomitant]
     Indication: SUPPLEMENTATION THERAPY
     Dosage: 0.5 ML, QD
     Route: 048
     Dates: start: 20171112
  21. DAPSONA [Concomitant]
     Active Substance: DAPSONE
     Indication: PROPHYLAXIS
     Dosage: 25 MG, QD
     Route: 048
     Dates: start: 20180422
  22. LACTULOSE. [Concomitant]
     Active Substance: LACTULOSE
     Indication: CONSTIPATION PROPHYLAXIS
     Dosage: 5 G, QD PM
     Route: 048
     Dates: start: 20171112
  23. METHOTREXATE. [Suspect]
     Active Substance: METHOTREXATE
     Indication: ACUTE LYMPHOCYTIC LEUKAEMIA
     Dosage: 12 MG, ONE TIME
     Route: 037
     Dates: start: 20180806
  24. THIOGUANINE [Suspect]
     Active Substance: THIOGUANINE
     Indication: ACUTE LYMPHOCYTIC LEUKAEMIA
     Dosage: 40 MG, QD (MON- SAT/ 60 MG QD (SUN ONLY), DID29-D42
     Route: 048
     Dates: start: 20180727
  25. MIRALAX [Concomitant]
     Active Substance: POLYETHYLENE GLYCOL 3350
     Indication: CONSTIPATION PROPHYLAXIS
     Dosage: 8.5 G, 1-3X QD PRN
     Route: 048
     Dates: start: 20171112
  26. MELATONIN [Concomitant]
     Active Substance: MELATONIN
     Indication: SLEEP DISORDER
     Dosage: 5 MG, QD
     Route: 048
     Dates: start: 20171116

REACTIONS (1)
  - Febrile neutropenia [Recovered/Resolved]

NARRATIVE: CASE EVENT DATE: 20180811
